FAERS Safety Report 9419353 (Version 1)
Quarter: 2013Q3

REPORT INFORMATION
  Report Type: Spontaneous
  Country: US (occurrence: US)
  Receive Date: 20130725
  Receipt Date: 20130725
  Transmission Date: 20140515
  Serious: No
  Sender: FDA-Public Use
  Company Number: US-GLAXOSMITHKLINE-A1019926A

PATIENT
  Sex: Female

DRUGS (2)
  1. LAMICTAL XR [Suspect]
     Indication: PRODUCT USED FOR UNKNOWN INDICATION
     Route: 065
  2. ORAL CONTRACEPTIVE [Suspect]
     Indication: PRODUCT USED FOR UNKNOWN INDICATION
     Route: 048

REACTIONS (3)
  - Unintended pregnancy [Unknown]
  - Drug interaction [Unknown]
  - Exposure during pregnancy [Unknown]
